FAERS Safety Report 10050284 (Version 2)
Quarter: 2014Q2

REPORT INFORMATION
  Report Type: Report from Study
  Country: NL (occurrence: NL)
  Receive Date: 20140401
  Receipt Date: 20140401
  Transmission Date: 20141212
  Serious: Yes (Other)
  Sender: FDA-Public Use
  Company Number: NL-ABBVIE-12P-114-0936053-00

PATIENT
  Age: 87 Year
  Sex: Male
  Weight: 70 kg

DRUGS (7)
  1. LUCRIN DEPOT [Suspect]
     Indication: PROSTATE CANCER
     Route: 058
     Dates: start: 20101006
  2. ACETYLSALICYLIC ACID [Concomitant]
     Indication: ANTICOAGULANT THERAPY
     Route: 048
     Dates: start: 201203
  3. FORMOTEROL W/BUDESONIDE [Concomitant]
     Indication: PRODUCT USED FOR UNKNOWN INDICATION
     Dosage: 200/6UG/DO 120 DO TURB
     Route: 055
  4. ISOSORBIDEMONONITRAAT [Concomitant]
     Indication: ANGINA PECTORIS
     Route: 048
     Dates: start: 201203
  5. NIFEDIPINE [Concomitant]
     Indication: ANGINA PECTORIS
     Dosage: TABLET SUSTINE RELEASED
     Route: 048
     Dates: start: 201203
  6. SIMVASTATIN [Concomitant]
     Indication: HYPERCHOLESTEROLAEMIA
     Dosage: PCH FC TABLET
     Route: 048
     Dates: start: 201203
  7. TAMSULOSINE [Concomitant]
     Indication: URINARY RETENTION
     Route: 048

REACTIONS (5)
  - Injection site pain [Not Recovered/Not Resolved]
  - Cardiac disorder [Not Recovered/Not Resolved]
  - Hypertension [Unknown]
  - Hypercholesterolaemia [Unknown]
  - Prostatic specific antigen increased [Unknown]
